FAERS Safety Report 15717577 (Version 1)
Quarter: 2018Q4

REPORT INFORMATION
  Report Type: Report from Study
  Country: IT (occurrence: IT)
  Receive Date: 20181213
  Receipt Date: 20181213
  Transmission Date: 20190205
  Serious: Yes (Congenital Anomaly)
  Sender: FDA-Public Use
  Company Number: IT-B.I. PHARMACEUTICALS,INC./RIDGEFIELD-2018-BI-059357

PATIENT

DRUGS (3)
  1. VIRAMUNE [Suspect]
     Active Substance: NEVIRAPINE
     Indication: PROPHYLAXIS AGAINST HIV INFECTION
     Dosage: DOSE- NR
     Route: 064
  2. STAVUDINE. [Suspect]
     Active Substance: STAVUDINE
     Indication: PROPHYLAXIS AGAINST HIV INFECTION
     Route: 064
  3. LAMIVUDINE. [Suspect]
     Active Substance: LAMIVUDINE
     Indication: PROPHYLAXIS AGAINST HIV INFECTION
     Route: 064

REACTIONS (2)
  - Congenital genitourinary abnormality [Unknown]
  - Foetal exposure during pregnancy [Unknown]
